FAERS Safety Report 4722227-1 (Version None)
Quarter: 2005Q3

REPORT INFORMATION
  Report Type: 
  Country: None (occurrence: None)
  Receive Date: 20050722
  Receipt Date: 20040910
  Transmission Date: 20060218
  Serious: No
  Sender: FDA-Public Use
  Company Number: US-GLAXOSMITHKLINE-A0525264A

PATIENT
  Age: 73 Year
  Sex: Male

DRUGS (5)
  1. AVANDIA [Suspect]
     Dosage: 8MG PER DAY
     Route: 048
     Dates: start: 19990101
  2. LASIX [Concomitant]
  3. HUMULIN [Concomitant]
  4. ALLOPURINOL [Concomitant]
     Route: 065
  5. BLOOD PRESSURE MED [Concomitant]

REACTIONS (2)
  - FLUID RETENTION [None]
  - OEDEMA PERIPHERAL [None]
